FAERS Safety Report 7289207-6 (Version None)
Quarter: 2011Q1

REPORT INFORMATION
  Report Type: 
  Country: None (occurrence: None)
  Receive Date: 20110211
  Receipt Date: 20110203
  Transmission Date: 20110831
  Serious: Yes (Hospitalization)
  Sender: FDA-Public Use
  Company Number: NO-ELI_LILLY_AND_COMPANY-NO201102001263

PATIENT
  Sex: Male

DRUGS (6)
  1. BYETTA [Suspect]
     Indication: DIABETES MELLITUS
     Dosage: 5 UG, 2/D
     Route: 058
     Dates: start: 20101207, end: 20101226
  2. GLUCOPHAGE [Concomitant]
     Indication: DIABETES MELLITUS
     Dosage: 1 G, 3/D
     Route: 048
  3. METOPROLOL TARTRATE [Concomitant]
     Indication: CARDIAC FAILURE
     Dosage: 200 MG, DAILY (1/D)
     Route: 048
  4. ZOCOR [Concomitant]
     Indication: CORONARY ARTERY DISEASE
     Dosage: 20 MG, DAILY (1/D)
     Route: 048
  5. TRIATEC [Concomitant]
     Indication: CARDIAC FAILURE
     Dosage: 10 MG, DAILY (1/D)
     Route: 048
  6. ALBYL-E [Concomitant]
     Indication: CORONARY ARTERY DISEASE
     Dosage: 75 MG, DAILY (1/D)
     Route: 048

REACTIONS (5)
  - FLATULENCE [None]
  - PANCREATITIS ACUTE [None]
  - ABDOMINAL DISCOMFORT [None]
  - RESPIRATORY DISORDER [None]
  - DECREASED APPETITE [None]
